FAERS Safety Report 13767187 (Version 1)
Quarter: 2017Q3

REPORT INFORMATION
  Report Type: Report from Study
  Country: IT (occurrence: IT)
  Receive Date: 20170719
  Receipt Date: 20170719
  Transmission Date: 20171127
  Serious: Yes (Other)
  Sender: FDA-Public Use
  Company Number: IT-ACCORD-053650

PATIENT
  Age: 74 Year
  Sex: Female

DRUGS (6)
  1. FOLINIC ACID [Suspect]
     Active Substance: LEUCOVORIN
     Indication: COLON CANCER METASTATIC
     Dosage: 200 MG FROM 22-JUN-2015 TO 22-JUN-2015 (CYCLE 1) THEN FROM 28-JUL-2015 TO 28-JUL-2015 (CYCLE 3)
     Route: 041
     Dates: start: 20150622, end: 20150817
  2. RANITIDINE. [Concomitant]
     Active Substance: RANITIDINE
     Dates: start: 20150622
  3. FLUOROURACIL. [Suspect]
     Active Substance: FLUOROURACIL
     Indication: COLON CANCER METASTATIC
     Dosage: BOLUS 550 FROM 22-JUN-2015 TO 22-JUN-2015, 28-JUL-2015 TO 28-JUL-2015, 17-AUG-2015 TO 17-AUG-2015
     Route: 040
     Dates: start: 20150622, end: 20150817
  4. AFLIBERCEPT [Suspect]
     Active Substance: AFLIBERCEPT
     Indication: COLON CANCER METASTATIC
     Route: 041
     Dates: start: 20150728, end: 20150817
  5. IRINOTECAN [Suspect]
     Active Substance: IRINOTECAN
     Indication: COLON CANCER METASTATIC
     Dosage: 200 MG FROM 22-JUN-2015 TO 22-JUN-2015 (CYCLE 1) THEN FROM 28-JUL-2015 TO 28-JUL-2015 (CYCLE 3)
     Route: 041
     Dates: start: 20150622, end: 20150817
  6. FILGRASTIM/GRANULOCYTE COLONY STIMULATING/LENOGRASTIM [Concomitant]
     Dates: start: 20150821, end: 20150829

REACTIONS (4)
  - Asthenia [Unknown]
  - Oedema peripheral [Recovered/Resolved]
  - Stomatitis [Unknown]
  - Decreased appetite [Unknown]

NARRATIVE: CASE EVENT DATE: 20150728
